FAERS Safety Report 12700080 (Version 2)
Quarter: 2016Q3

REPORT INFORMATION
  Report Type: Spontaneous
  Country: IT (occurrence: IT)
  Receive Date: 20160830
  Receipt Date: 20160913
  Transmission Date: 20161109
  Serious: Yes (Other)
  Sender: FDA-Public Use
  Company Number: IT-PFIZER INC-2016405631

PATIENT
  Age: 31 Year
  Sex: Female

DRUGS (2)
  1. MIDAZOLAM [Concomitant]
     Active Substance: MIDAZOLAM\MIDAZOLAM HYDROCHLORIDE
     Indication: SEDATION
     Dosage: UNK
     Dates: start: 20160808, end: 20160808
  2. FENTANEST [Suspect]
     Active Substance: FENTANYL CITRATE
     Indication: SEDATION
     Dosage: AS NEEDED
     Route: 030
     Dates: start: 20160808

REACTIONS (5)
  - Malaise [Unknown]
  - Vomiting [Unknown]
  - Nausea [Unknown]
  - Asthenia [Unknown]
  - Gastritis [Unknown]

NARRATIVE: CASE EVENT DATE: 20160808
